FAERS Safety Report 12715067 (Version 3)
Quarter: 2016Q3

REPORT INFORMATION
  Report Type: Spontaneous
  Country: NL (occurrence: NL)
  Receive Date: 20160905
  Receipt Date: 20160914
  Transmission Date: 20161109
  Serious: Yes (Death, Life-Threatening, Hospitalization)
  Sender: FDA-Public Use
  Company Number: NL-009507513-1608NLD014345

PATIENT
  Age: 80 Year
  Sex: Male
  Weight: 86 kg

DRUGS (2)
  1. MIRTAZAPINE. [Suspect]
     Active Substance: MIRTAZAPINE
     Indication: DEPRESSION
     Dosage: 1 TIME PER DAY 1 PIECE (S)
     Route: 048
     Dates: start: 20160720
  2. AMIODARONE [Concomitant]
     Active Substance: AMIODARONE
     Dosage: 1 TIME PER DAY 1 PIECE (S)
     Route: 048
     Dates: start: 20060101

REACTIONS (1)
  - Pancreatitis [Fatal]

NARRATIVE: CASE EVENT DATE: 20160731
